FAERS Safety Report 9519230 (Version 1)
Quarter: 2013Q1

REPORT INFORMATION
  Report Type: Spontaneous
  Country: US (occurrence: None)
  Receive Date: 20130305
  Receipt Date: 20130305
  Transmission Date: 20140127
  Serious: Yes (Hospitalization, Other)
  Sender: FDA-Public Use
  Company Number: 163-21880-12100544

PATIENT
  Age: 87 Year
  Sex: Female

DRUGS (1)
  1. REVLIMID [Suspect]
     Indication: 5Q MINUS SYNDROME
     Dosage: 5 MG, DAILY EVERY MON, WED, + FRI FOR 28 DAYS, PO
     Dates: start: 20090219

REACTIONS (3)
  - Cardiac failure congestive [None]
  - Drug dose omission [None]
  - No adverse event [None]
